FAERS Safety Report 7533605-X (Version None)
Quarter: 2011Q2

REPORT INFORMATION
  Report Type: 
  Country: None (occurrence: None)
  Receive Date: 20110608
  Receipt Date: 20060311
  Transmission Date: 20111010
  Serious: Yes (Other)
  Sender: FDA-Public Use
  Company Number: PHFR2006GB01138

PATIENT
  Sex: Male

DRUGS (2)
  1. DIAZEPAM [Suspect]
     Route: 065
  2. CLOZARIL [Suspect]
     Route: 048
     Dates: start: 20030317

REACTIONS (3)
  - DYSPNOEA [None]
  - ASTHMA [None]
  - RESPIRATORY FAILURE [None]
